FAERS Safety Report 16104097 (Version 1)
Quarter: 2019Q1

REPORT INFORMATION
  Report Type: Spontaneous
  Country: ES (occurrence: ES)
  Receive Date: 20190322
  Receipt Date: 20190322
  Transmission Date: 20190418
  Serious: Yes (Death, Hospitalization, Other)
  Sender: FDA-Public Use
  Company Number: ES-ACCORD-114211

PATIENT
  Age: 35 Year
  Sex: Female

DRUGS (3)
  1. LENALIDOMIDE [Concomitant]
     Active Substance: LENALIDOMIDE
     Indication: HODGKIN^S DISEASE
     Dosage: TAKEN FROM AUG-2014 TO JAN-2015,20 MG,(FOR 3 OF EVERY 4 WEEKS).
     Route: 065
     Dates: start: 201408, end: 201501
  2. CELECOXIB. [Suspect]
     Active Substance: CELECOXIB
     Indication: HODGKIN^S DISEASE
     Dosage: TAKEN FROM AUG-2014 TO JAN-2015,ALSO TAKEN FROM MAR-2016
     Route: 065
  3. BENDAMUSTINE/BENDAMUSTINE HYDROCHLORIDE [Suspect]
     Active Substance: BENDAMUSTINE HYDROCHLORIDE
     Indication: HODGKIN^S DISEASE
     Route: 042

REACTIONS (5)
  - Anaemia [Unknown]
  - Off label use [Unknown]
  - Sepsis [Fatal]
  - Disease progression [Unknown]
  - Gastrointestinal haemorrhage [Unknown]
